FAERS Safety Report 7756454-6 (Version None)
Quarter: 2011Q3

REPORT INFORMATION
  Report Type: 
  Country: None (occurrence: None)
  Receive Date: 20110915
  Receipt Date: 20110915
  Transmission Date: 20111222
  Serious: No
  Sender: FDA-Public Use
  Company Number: None

PATIENT
  Sex: Male

DRUGS (1)
  1. PROGRAF [Suspect]
     Indication: LIVER TRANSPLANT
     Dosage: 1MG CAP. PO BID
     Route: 048

REACTIONS (2)
  - PRODUCT SUBSTITUTION ISSUE [None]
  - NO ADVERSE EVENT [None]
